FAERS Safety Report 6711996-7 (Version None)
Quarter: 2010Q2

REPORT INFORMATION
  Report Type: 
  Country: None (occurrence: None)
  Receive Date: 20100505
  Receipt Date: 20100427
  Transmission Date: 20101027
  Serious: Yes (Other)
  Sender: FDA-Public Use
  Company Number: US-ASTRAZENECA-2010SE11473

PATIENT
  Age: 55 Year
  Sex: Female
  Weight: 46.3 kg

DRUGS (4)
  1. SEROQUEL [Suspect]
     Indication: BIPOLAR II DISORDER
     Route: 048
     Dates: start: 20091215
  2. SEROQUEL [Suspect]
     Dosage: 100 MG 2-3 TABS AT HOUR OF SLEEP
     Route: 048
     Dates: start: 20100222, end: 20100313
  3. OTC SUPPLEMETS [Concomitant]
  4. TEMAZEPAM [Concomitant]
     Indication: INSOMNIA
     Dosage: 1-2 AT HOUR OF SLEEP AS NEEDED
     Route: 048

REACTIONS (5)
  - DRY MOUTH [None]
  - NASAL CONGESTION [None]
  - NASOPHARYNGITIS [None]
  - OBSTRUCTIVE AIRWAYS DISORDER [None]
  - SEDATION [None]
